FAERS Safety Report 7992690-1 (Version None)
Quarter: 2011Q4

REPORT INFORMATION
  Report Type: 
  Country: None (occurrence: None)
  Receive Date: 20111219
  Receipt Date: 20110225
  Transmission Date: 20120403
  Serious: No
  Sender: FDA-Public Use
  Company Number: US-ASTRAZENECA-2011SE10804

PATIENT
  Age: 787 Month
  Sex: Female
  Weight: 63.5 kg

DRUGS (4)
  1. CRESTOR [Suspect]
     Indication: BLOOD CHOLESTEROL INCREASED
     Route: 048
     Dates: start: 20100601
  2. EXFORGE [Concomitant]
     Indication: HYPERTENSION
  3. EXPIRED ICY HOT [Concomitant]
     Indication: MYALGIA
  4. BLOOD PRESSURE MEDICATION [Concomitant]
     Indication: HYPERTENSION

REACTIONS (3)
  - LIP DRY [None]
  - EXTERNAL EAR DISORDER [None]
  - RASH [None]
